FAERS Safety Report 8820718 (Version 2)
Quarter: 2013Q1

REPORT INFORMATION
  Report Type: Spontaneous
  Country: NO (occurrence: NO)
  Receive Date: 20121002
  Receipt Date: 20130214
  Transmission Date: 20140127
  Serious: Yes (Death, Other)
  Sender: FDA-Public Use
  Company Number: PHHY2012NO085143

PATIENT
  Sex: Female

DRUGS (16)
  1. DESFERAL [Suspect]
     Route: 058
     Dates: start: 200307, end: 2008
  2. DESFERAL [Suspect]
     Dosage: UNK UKN, UNK
     Route: 058
     Dates: start: 2008
  3. PREDNISOLON [Concomitant]
  4. MAGNESIUM [Concomitant]
  5. CALCIGRAN [Concomitant]
  6. AFIPRAN [Concomitant]
  7. ATARAX [Concomitant]
  8. PARACET [Concomitant]
  9. INSULIN [Concomitant]
  10. NEXIUM [Concomitant]
  11. ALBYL-E [Concomitant]
  12. LEVAXIN [Concomitant]
  13. ONDANSETRON [Concomitant]
  14. IMOVANE [Concomitant]
  15. FENTANYL [Concomitant]
  16. LACTULOSE [Concomitant]

REACTIONS (7)
  - Renal failure [Fatal]
  - Sepsis [Fatal]
  - Multi-organ failure [Fatal]
  - Malaise [Unknown]
  - Blood potassium increased [Unknown]
  - Nausea [Unknown]
  - Serum ferritin increased [Unknown]
